FAERS Safety Report 7712266-0 (Version None)
Quarter: 2011Q3

REPORT INFORMATION
  Report Type: 
  Country: None (occurrence: None)
  Receive Date: 20110822
  Receipt Date: 20110805
  Transmission Date: 20111222
  Serious: Yes (Hospitalization)
  Sender: FDA-Public Use
  Company Number: UTC-009313

PATIENT
  Age: 80 Year
  Sex: Female
  Weight: 45 kg

DRUGS (4)
  1. DIURETICS (DIURETICS) [Concomitant]
  2. REMODULIN [Suspect]
     Indication: COR PULMONALE CHRONIC
     Dosage: 13.32 UG/KG (0.00925 UG/KG, 1 IN 1 MIN), SUBCUTANEOUS
     Route: 058
     Dates: start: 20110512
  3. COUMADIN [Concomitant]
  4. LETAIRIS [Concomitant]

REACTIONS (3)
  - PYREXIA [None]
  - ENTEROCOCCAL INFECTION [None]
  - INJECTION SITE INFECTION [None]
